FAERS Safety Report 9684709 (Version 1)
Quarter: 2013Q4

REPORT INFORMATION
  Report Type: Spontaneous
  Country: DE (occurrence: DE)
  Receive Date: 20131112
  Receipt Date: 20131112
  Transmission Date: 20140711
  Serious: Yes (Other)
  Sender: FDA-Public Use
  Company Number: DE-ASTRAZENECA-2013SE81532

PATIENT
  Age: 19 Year
  Sex: Male

DRUGS (13)
  1. QUETIAPIN [Suspect]
     Route: 048
     Dates: start: 20130225, end: 20130301
  2. QUETIAPIN [Suspect]
     Route: 048
     Dates: start: 20130302, end: 20130302
  3. QUETIAPIN [Suspect]
     Route: 048
     Dates: start: 20130303, end: 20130304
  4. QUETIAPIN [Suspect]
     Route: 048
     Dates: start: 20130305, end: 20130308
  5. QUETIAPIN [Suspect]
     Route: 048
     Dates: start: 20130309, end: 20130309
  6. QUETIAPIN [Suspect]
     Route: 048
     Dates: start: 20130310
  7. RISPERDAL [Suspect]
     Route: 048
     Dates: start: 20130214, end: 20130217
  8. RISPERDAL [Suspect]
     Route: 048
     Dates: start: 20130218, end: 20130218
  9. RISPERDAL [Suspect]
     Route: 048
     Dates: start: 20130219, end: 20130219
  10. RISPERDAL [Suspect]
     Route: 048
     Dates: start: 20130220, end: 20130222
  11. RISPERDAL [Suspect]
     Route: 048
     Dates: start: 20130301, end: 20130310
  12. RISPERDAL [Suspect]
     Route: 048
     Dates: start: 20130311, end: 20130317
  13. ACAMPROSAT [Concomitant]
     Route: 048
     Dates: start: 20130312

REACTIONS (1)
  - Liver function test abnormal [Recovering/Resolving]
